FAERS Safety Report 16279496 (Version 1)
Quarter: 2019Q2

REPORT INFORMATION
  Report Type: Report from Study
  Country: CN (occurrence: CN)
  Receive Date: 20190507
  Receipt Date: 20190507
  Transmission Date: 20190711
  Serious: Yes (Hospitalization)
  Sender: FDA-Public Use
  Company Number: CN-UCBSA-2019019202

PATIENT
  Age: 32 Year

DRUGS (2)
  1. LEVETIRACETAM. [Suspect]
     Active Substance: LEVETIRACETAM
     Indication: EPILEPSY
     Dosage: 35-40 MG/KG, 1,500-2,500 MG/D, SEPARATED INTO 2-3 ADMINISTRATIONS
  2. VALPROIC ACID. [Suspect]
     Active Substance: VALPROIC ACID
     Indication: EPILEPSY
     Dosage: 400 MILLIGRAM, 2X/DAY (BID)
     Route: 042

REACTIONS (2)
  - Anal incontinence [Recovered/Resolved]
  - Urinary incontinence [Recovered/Resolved]
